FAERS Safety Report 12964830 (Version 5)
Quarter: 2017Q1

REPORT INFORMATION
  Report Type: Report from Study
  Country: US (occurrence: US)
  Receive Date: 20161122
  Receipt Date: 20170307
  Transmission Date: 20170428
  Serious: Yes (Hospitalization, Other)
  Sender: FDA-Public Use
  Company Number: US-ACTELION-A-NJ2016-145432

PATIENT
  Age: 28 Year
  Sex: Female

DRUGS (7)
  1. LETAIRIS [Concomitant]
     Active Substance: AMBRISENTAN
  2. VELETRI [Suspect]
     Active Substance: EPOPROSTENOL
     Dosage: 20 NG/KG, PER MIN
     Route: 042
  3. VELETRI [Suspect]
     Active Substance: EPOPROSTENOL
     Indication: PULMONARY ARTERIAL HYPERTENSION
     Dosage: 5 NG/KG, PER MIN
     Route: 042
     Dates: start: 20161027
  4. ADCIRCA [Concomitant]
     Active Substance: TADALAFIL
  5. OPSUMIT [Suspect]
     Active Substance: MACITENTAN
     Indication: PULMONARY ARTERIAL HYPERTENSION
     Dosage: 10 MG, QD
     Route: 048
     Dates: start: 20160804
  6. OPSUMIT [Suspect]
     Active Substance: MACITENTAN
     Dosage: 10 MG, QD
     Route: 048
  7. ELIQUIS [Concomitant]
     Active Substance: APIXABAN

REACTIONS (19)
  - Fatigue [Unknown]
  - Flushing [Unknown]
  - Full blood count abnormal [Unknown]
  - Diarrhoea [Unknown]
  - Hypotension [Unknown]
  - Headache [Unknown]
  - Viral infection [Unknown]
  - Asthenia [Unknown]
  - Rash [Unknown]
  - Platelet count decreased [Unknown]
  - Face oedema [Unknown]
  - Pyrexia [Unknown]
  - Malaise [Unknown]
  - Decreased appetite [Recovering/Resolving]
  - Visual impairment [Unknown]
  - Hypoaesthesia [Unknown]
  - Anaemia [Unknown]
  - Chills [Unknown]
  - Feeling abnormal [Unknown]

NARRATIVE: CASE EVENT DATE: 20161113
